FAERS Safety Report 17197518 (Version 1)
Quarter: 2019Q4

REPORT INFORMATION
  Report Type: Spontaneous
  Country: US (occurrence: US)
  Receive Date: 20191224
  Receipt Date: 20191224
  Transmission Date: 20200122
  Serious: Yes (Death, Hospitalization)
  Sender: FDA-Public Use
  Company Number: US-TEVA-2019-US-1157561

PATIENT
  Age: 25 Year
  Sex: Female

DRUGS (1)
  1. PROPRANOLOL [Suspect]
     Active Substance: PROPRANOLOL HYDROCHLORIDE
     Dosage: INTENTIONAL INGESTED } 3G OF HER PROPRANOLOL
     Route: 065

REACTIONS (9)
  - Intentional overdose [Fatal]
  - Bradycardia [Unknown]
  - Pupil fixed [Unknown]
  - Toxicity to various agents [Fatal]
  - Hypoxic-ischaemic encephalopathy [Fatal]
  - Pulseless electrical activity [Unknown]
  - Brain death [Fatal]
  - Cardiac arrest [Unknown]
  - Completed suicide [Fatal]
